FAERS Safety Report 8959696 (Version 3)
Quarter: 2012Q4

REPORT INFORMATION
  Report Type: 
  Country: JP (occurrence: JP)
  Receive Date: 20121212
  Receipt Date: 20121228
  Transmission Date: 20130627
  Serious: Yes (Hospitalization)
  Sender: FDA-Public Use
  Company Number: JP-UCBSA-072707

PATIENT
  Age: 65 Year
  Sex: Male
  Weight: 53 kg

DRUGS (6)
  1. E KEPPRA [Suspect]
     Indication: TEMPORAL LOBE EPILEPSY
     Route: 048
     Dates: start: 20121116, end: 20121119
  2. TEGRETOL [Concomitant]
     Indication: TEMPORAL LOBE EPILEPSY
     Dosage: DAILY DOSE: 400MG
     Route: 048
     Dates: start: 20121109
  3. AMARYL [Concomitant]
     Indication: DIABETES MELLITUS
     Dosage: DAILY DOSE: 0.5MG
     Route: 048
     Dates: start: 20121109, end: 20121126
  4. AMARYL [Concomitant]
     Indication: DIABETES MELLITUS
     Dosage: DAILY DOSE: 2MG
     Route: 048
     Dates: start: 20121127
  5. PHENOBAL [Concomitant]
     Indication: SEDATIVE THERAPY
     Dosage: DAILY DOSE: 60MG
     Route: 048
     Dates: start: 20121116, end: 20121118
  6. PHENOBAL [Concomitant]
     Indication: CONVULSION PROPHYLAXIS
     Dosage: DAILY DOSE: 60MG
     Route: 048
     Dates: start: 20121116, end: 20121118

REACTIONS (1)
  - Delirium [Recovered/Resolved]
